FAERS Safety Report 16081750 (Version 2)
Quarter: 2019Q3

REPORT INFORMATION
  Report Type: Report from Study
  Country: GB (occurrence: GB)
  Receive Date: 20190316
  Receipt Date: 20190826
  Transmission Date: 20191004
  Serious: Yes (Other)
  Sender: FDA-Public Use
  Company Number: PHHY2018GB054636

PATIENT
  Sex: Male

DRUGS (1)
  1. GILENYA [Suspect]
     Active Substance: FINGOLIMOD HYDROCHLORIDE
     Indication: MULTIPLE SCLEROSIS
     Dosage: 0.5 MG, QD
     Route: 048
     Dates: start: 20170607

REACTIONS (6)
  - Stress [Unknown]
  - Anxiety [Unknown]
  - Gait disturbance [Unknown]
  - Fatigue [Unknown]
  - Depression [Unknown]
  - Suicidal ideation [Unknown]
